FAERS Safety Report 7550874-0 (Version None)
Quarter: 2011Q2

REPORT INFORMATION
  Report Type: 
  Country: None (occurrence: None)
  Receive Date: 20110616
  Receipt Date: 20110613
  Transmission Date: 20111010
  Serious: No
  Sender: FDA-Public Use
  Company Number: US-PFIZER INC-2011122185

PATIENT
  Sex: Female

DRUGS (2)
  1. LYRICA [Suspect]
     Indication: SPINAL COLUMN STENOSIS
     Dosage: UNK
     Route: 048
  2. LYRICA [Suspect]
     Indication: ARTHRITIS

REACTIONS (2)
  - SWELLING [None]
  - DRUG INEFFECTIVE [None]
